FAERS Safety Report 15330840 (Version 1)
Quarter: 2018Q3

REPORT INFORMATION
  Report Type: Spontaneous
  Country: US (occurrence: US)
  Receive Date: 20180829
  Receipt Date: 20180829
  Transmission Date: 20181010
  Serious: No
  Sender: FDA-Public Use
  Company Number: US-AKRON, INC.-2054427

PATIENT
  Sex: Female

DRUGS (1)
  1. LACTULOSE ORAL SOLUTION [Suspect]
     Active Substance: LACTULOSE

REACTIONS (1)
  - Product use complaint [Unknown]
